FAERS Safety Report 10499403 (Version 1)
Quarter: 2014Q4

REPORT INFORMATION
  Report Type: Spontaneous
  Country: US (occurrence: US)
  Receive Date: 20141006
  Receipt Date: 20141006
  Transmission Date: 20150528
  Serious: No
  Sender: FDA-Public Use
  Company Number: US-AMGEN INC.-USASP2014044093

PATIENT
  Sex: Male

DRUGS (3)
  1. TRELSTAR [Concomitant]
     Active Substance: TRIPTORELIN PAMOATE
  2. CASODEX [Concomitant]
     Active Substance: BICALUTAMIDE
     Dosage: 50 MG, QD
  3. XGEVA [Suspect]
     Active Substance: DENOSUMAB
     Indication: BONE DISORDER
     Route: 065

REACTIONS (1)
  - Prostatic specific antigen abnormal [Unknown]
